FAERS Safety Report 8320080-0 (Version None)
Quarter: 2012Q2

REPORT INFORMATION
  Report Type: 
  Country: None (occurrence: None)
  Receive Date: 20120429
  Receipt Date: 20120423
  Transmission Date: 20120825
  Serious: Yes (Hospitalization, Other)
  Sender: FDA-Public Use
  Company Number: CA-TEVA-334743USA

PATIENT
  Sex: Female

DRUGS (1)
  1. COPAXONE [Suspect]
     Indication: MULTIPLE SCLEROSIS
     Dosage: 20 MILLIGRAM;
     Route: 058
     Dates: start: 20110824

REACTIONS (11)
  - DYSPNOEA [None]
  - DIARRHOEA [None]
  - TREMOR [None]
  - VOMITING [None]
  - PARAESTHESIA [None]
  - VISUAL IMPAIRMENT [None]
  - IMMEDIATE POST-INJECTION REACTION [None]
  - FLUSHING [None]
  - ABDOMINAL PAIN [None]
  - SWELLING FACE [None]
  - FEELING COLD [None]
